FAERS Safety Report 5607704-3 (Version None)
Quarter: 2008Q1

REPORT INFORMATION
  Report Type: 
  Country: None (occurrence: None)
  Receive Date: 20080130
  Receipt Date: 20080123
  Transmission Date: 20080703
  Serious: Yes (Hospitalization)
  Sender: FDA-Public Use
  Company Number: US-BRISTOL-MYERS SQUIBB COMPANY-14056097

PATIENT
  Sex: Female

DRUGS (1)
  1. ABATACEPT [Suspect]

REACTIONS (1)
  - CRYPTOGENIC ORGANISING PNEUMONIA [None]
